FAERS Safety Report 10548849 (Version 1)
Quarter: 2014Q4

REPORT INFORMATION
  Report Type: Spontaneous
  Country: US (occurrence: None)
  Receive Date: 20141015
  Receipt Date: 20141015
  Transmission Date: 20150529
  Serious: Yes (Hospitalization)
  Sender: FDA-Public Use
  Company Number: 2013US001143

PATIENT
  Age: 72 Year
  Sex: Male
  Weight: 54 kg

DRUGS (15)
  1. ICLUSIG [Suspect]
     Active Substance: PONATINIB
     Indication: CHRONIC MYELOID LEUKAEMIA
     Route: 048
     Dates: start: 20130101
  2. CENTRUM [Concomitant]
     Active Substance: VITAMINS
  3. VITAMIN B12 [Concomitant]
     Active Substance: CYANOCOBALAMIN
  4. OMEPRAZOLE. [Concomitant]
     Active Substance: OMEPRAZOLE
  5. HYDROCODONE [Concomitant]
     Active Substance: HYDROCODONE
  6. ATENOLOL. [Concomitant]
     Active Substance: ATENOLOL
  7. MAGNESIUM [Concomitant]
     Active Substance: MAGNESIUM
  8. CARBAMAZEPINE. [Concomitant]
     Active Substance: CARBAMAZEPINE
  9. ALBUTEROL. [Concomitant]
     Active Substance: ALBUTEROL
  10. HYDROCHLOROTHIAZIDE. [Concomitant]
     Active Substance: HYDROCHLOROTHIAZIDE
  11. TYLENOL [Concomitant]
     Active Substance: ACETAMINOPHEN
  12. KLOR-CON [Concomitant]
     Active Substance: POTASSIUM CHLORIDE
  13. WELCHOL [Concomitant]
     Active Substance: COLESEVELAM HYDROCHLORIDE
  14. SIMVASTATIN. [Concomitant]
     Active Substance: SIMVASTATIN
  15. ASA [Concomitant]
     Active Substance: ASPIRIN

REACTIONS (9)
  - Weight decreased [None]
  - Decreased appetite [None]
  - Medication error [None]
  - Dry skin [None]
  - Diarrhoea [None]
  - Abdominal pain upper [None]
  - Skin exfoliation [None]
  - Hypertension [None]
  - Epistaxis [None]

NARRATIVE: CASE EVENT DATE: 20130127
